FAERS Safety Report 23456631 (Version 1)
Quarter: 2024Q1

REPORT INFORMATION
  Report Type: Spontaneous
  Country: US (occurrence: None)
  Receive Date: 20240129
  Receipt Date: 20240129
  Transmission Date: 20240410
  Serious: Yes (Life-Threatening, Hospitalization, Disabling, Other)
  Sender: FDA-Public Use
  Company Number: None

PATIENT
  Age: 23 Year
  Sex: Female
  Weight: 62.1 kg

DRUGS (3)
  1. .DELTA.8-TETRAHYDROCANNABINOL\HERBALS [Suspect]
     Active Substance: .DELTA.8-TETRAHYDROCANNABINOL\HERBALS
     Indication: Product use issue
     Dosage: OTHER QUANTITY : 1 CAN;?OTHER FREQUENCY : FIRST TIME;?
     Route: 048
  2. Kombucha body cleansing [Concomitant]
  3. PRASTERONE [Concomitant]
     Active Substance: PRASTERONE

REACTIONS (11)
  - Malaise [None]
  - Dizziness [None]
  - Paranoia [None]
  - Loss of consciousness [None]
  - Paralysis [None]
  - Heart rate decreased [None]
  - Hypotension [None]
  - Near death experience [None]
  - Anxiety [None]
  - Tremor [None]
  - Vision blurred [None]

NARRATIVE: CASE EVENT DATE: 20240121
